FAERS Safety Report 6693648-5 (Version None)
Quarter: 2010Q2

REPORT INFORMATION
  Report Type: 
  Country: None (occurrence: None)
  Receive Date: 20100423
  Receipt Date: 20100414
  Transmission Date: 20101027
  Serious: Yes (Death, Hospitalization)
  Sender: FDA-Public Use
  Company Number: CA-CELGENEUS-028-21880-09100714

PATIENT
  Sex: Female
  Weight: 56.2 kg

DRUGS (22)
  1. CC-5013 [Suspect]
     Indication: MULTIPLE MYELOMA
     Route: 048
     Dates: start: 20090924, end: 20091007
  2. DEXAMETHASONE [Suspect]
     Indication: MULTIPLE MYELOMA
     Route: 065
     Dates: start: 20090924, end: 20091007
  3. COLACE [Concomitant]
     Indication: CONSTIPATION
     Route: 048
     Dates: start: 20091007, end: 20091008
  4. CELEBREX [Concomitant]
     Indication: BACK PAIN
     Route: 048
  5. DICLOFENAC [Concomitant]
     Indication: BACK PAIN
     Route: 061
  6. VOLTAREN [Concomitant]
     Indication: BACK PAIN
     Route: 048
  7. ASPIRIN [Concomitant]
     Indication: THROMBOSIS PROPHYLAXIS
     Route: 048
     Dates: start: 20090918, end: 20091001
  8. OXYCODONE HCL AND ACETAMINOPHEN [Concomitant]
     Indication: BONE PAIN
     Dosage: 1-2 TABS
     Route: 048
     Dates: start: 20090915, end: 20091013
  9. IBUPROFEN [Concomitant]
     Indication: BONE PAIN
     Route: 048
     Dates: start: 20090915, end: 20091013
  10. SENNA [Concomitant]
     Indication: BONE PAIN
     Route: 048
     Dates: start: 20090915, end: 20091008
  11. RED BLOOD CELLS [Concomitant]
     Dosage: 3 UNITS
     Route: 051
     Dates: start: 20090918, end: 20090918
  12. VENTOLIN [Concomitant]
     Route: 045
     Dates: start: 20091007, end: 20091011
  13. ATROVENT [Concomitant]
     Route: 065
     Dates: start: 20091007, end: 20091011
  14. SULFAMETHOXAZOLE AND TRIMETHOPRIM [Concomitant]
     Indication: PNEUMONIA
     Dosage: 2 TABS (800/160 MG)
     Route: 048
     Dates: start: 20091007, end: 20091009
  15. LASIX [Concomitant]
     Indication: HYPERTENSION
     Route: 051
     Dates: start: 20091007, end: 20091007
  16. SOLU-MEDROL [Concomitant]
     Route: 051
     Dates: start: 20091008, end: 20091011
  17. FILGRASTIM [Concomitant]
     Indication: NEUTROPENIA
     Route: 058
     Dates: start: 20091008, end: 20091009
  18. GRAVOL TAB [Concomitant]
     Indication: NAUSEA
     Route: 051
     Dates: start: 20091008, end: 20091010
  19. HYDROMORPHONE HCL [Concomitant]
     Indication: RESPIRATORY DISTRESS
     Route: 058
     Dates: start: 20091010, end: 20091013
  20. MORPHINE [Concomitant]
     Indication: RESPIRATORY DISTRESS
     Route: 058
     Dates: start: 20091010, end: 20091013
  21. LOVENOX [Concomitant]
     Indication: THROMBOSIS PROPHYLAXIS
     Route: 058
     Dates: start: 20091007, end: 20091011
  22. ATIVAN [Concomitant]
     Indication: RESPIRATORY DISTRESS
     Route: 058
     Dates: start: 20091010, end: 20091011

REACTIONS (10)
  - FEBRILE NEUTROPENIA [None]
  - HAEMATOCRIT DECREASED [None]
  - HAEMOGLOBIN DECREASED [None]
  - PNEUMONIA PNEUMOCOCCAL [None]
  - PULMONARY OEDEMA [None]
  - RED BLOOD CELL COUNT DECREASED [None]
  - RESPIRATORY FAILURE [None]
  - SEPSIS [None]
  - STREPTOCOCCAL INFECTION [None]
  - WHITE BLOOD CELL COUNT DECREASED [None]
